FAERS Safety Report 18538333 (Version 1)
Quarter: 2020Q4

REPORT INFORMATION
  Report Type: Other
  Country: FR (occurrence: FR)
  Receive Date: 20201124
  Receipt Date: 20201124
  Transmission Date: 20210114
  Serious: Yes (Death)
  Sender: FDA-Public Use
  Company Number: FR-ASTELLAS-2020US040863

PATIENT
  Age: 47 Year
  Sex: Male

DRUGS (12)
  1. CELLCEPT [Interacting]
     Active Substance: MYCOPHENOLATE MOFETIL\MYCOPHENOLATE MOFETIL HYDROCHLORIDE
     Indication: PROPHYLAXIS AGAINST TRANSPLANT REJECTION
     Route: 048
     Dates: end: 20200930
  2. PREDNISONE. [Interacting]
     Active Substance: PREDNISONE
     Dosage: UNK UNK, UNKNOWN FREQ.(INCREASED DOSE)
     Route: 048
     Dates: end: 20201019
  3. IRBESARTAN. [Concomitant]
     Active Substance: IRBESARTAN
     Indication: HYPERTENSION
     Route: 048
     Dates: end: 20200926
  4. ABASAGLAR [Concomitant]
     Active Substance: INSULIN GLARGINE
     Indication: STEROID DIABETES
     Route: 058
     Dates: end: 20201019
  5. LANSOPRAZOLE. [Concomitant]
     Active Substance: LANSOPRAZOLE
     Indication: GASTROOESOPHAGEAL REFLUX DISEASE
     Route: 048
     Dates: end: 20200925
  6. ALPRAZOLAM. [Concomitant]
     Active Substance: ALPRAZOLAM
     Indication: ANXIETY
     Route: 048
     Dates: end: 20200925
  7. HUMALOG [Concomitant]
     Active Substance: INSULIN LISPRO
     Indication: STEROID DIABETES
     Dosage: 50 IU, ONCE DAILY (16-18-16)
     Route: 058
     Dates: end: 20200927
  8. NEBIVOLOL. [Concomitant]
     Active Substance: NEBIVOLOL
     Indication: PRODUCT USED FOR UNKNOWN INDICATION
     Route: 048
     Dates: end: 20200925
  9. LERCANIDIPINE [Concomitant]
     Active Substance: LERCANIDIPINE
     Indication: HYPERTENSION
     Route: 048
     Dates: end: 20200926
  10. TACROLIMUS. [Suspect]
     Active Substance: TACROLIMUS
     Indication: PROPHYLAXIS AGAINST TRANSPLANT REJECTION
     Route: 048
  11. TACROLIMUS. [Interacting]
     Active Substance: TACROLIMUS
     Dosage: UNK UNK, UNKNOWN FREQ.
     Route: 048
     Dates: end: 20201019
  12. PREDNISONE. [Interacting]
     Active Substance: PREDNISONE
     Indication: PROPHYLAXIS AGAINST TRANSPLANT REJECTION
     Route: 048

REACTIONS (2)
  - Coronavirus infection [Fatal]
  - Drug interaction [Unknown]

NARRATIVE: CASE EVENT DATE: 20200925
